FAERS Safety Report 23082489 (Version 3)
Quarter: 2024Q1

REPORT INFORMATION
  Report Type: Report from Study
  Country: JP (occurrence: JP)
  Receive Date: 20231019
  Receipt Date: 20240315
  Transmission Date: 20240409
  Serious: Yes (Hospitalization, Disabling)
  Sender: FDA-Public Use
  Company Number: JP-ABBVIE-5453136

PATIENT
  Age: 52 Year
  Sex: Female
  Weight: 51 kg

DRUGS (4)
  1. RINVOQ [Suspect]
     Active Substance: UPADACITINIB
     Indication: Axial spondyloarthritis
     Dosage: 7.5 MILLIGRAM?FORM STRENGTH: 7.5 MG
     Route: 048
     Dates: start: 20230424, end: 20230804
  2. RINVOQ [Suspect]
     Active Substance: UPADACITINIB
     Indication: Axial spondyloarthritis
     Dosage: 7.5 MILLIGRAM?FORM STRENGTH: 7.5 MG
     Route: 048
     Dates: start: 20231003
  3. DICLOFENAC SODIUM [Concomitant]
     Active Substance: DICLOFENAC\DICLOFENAC SODIUM
     Indication: Axial spondyloarthritis
     Route: 048
  4. TRAMADOL HYDROCHLORIDE AND ACETAMINOPHEN [Concomitant]
     Active Substance: ACETAMINOPHEN\TRAMADOL HYDROCHLORIDE
     Indication: Axial spondyloarthritis
     Route: 048

REACTIONS (2)
  - Infective tenosynovitis [Recovered/Resolved with Sequelae]
  - Bacteraemia [Unknown]

NARRATIVE: CASE EVENT DATE: 20230804
